FAERS Safety Report 13374682 (Version 1)
Quarter: 2017Q1

REPORT INFORMATION
  Report Type: Spontaneous
  Country: US (occurrence: US)
  Receive Date: 20170327
  Receipt Date: 20170327
  Transmission Date: 20170429
  Serious: No
  Sender: FDA-Public Use
  Company Number: US-MATRIXX INITIATIVES, INC.-1064696

PATIENT
  Age: 38 Year
  Sex: Female
  Weight: 65.91 kg

DRUGS (5)
  1. FOLIC ACID. [Concomitant]
     Active Substance: FOLIC ACID
  2. UNSPECIFIED THYROID MEDICATION [Concomitant]
     Active Substance: UNSPECIFIED INGREDIENT
  3. MULTIVITAMINS [Concomitant]
     Active Substance: VITAMINS
  4. UNSPECIFIED COLITIS MEDICATION [Concomitant]
  5. ZICAM INTENSE SINUS RELIEF [Suspect]
     Active Substance: OXYMETAZOLINE HYDROCHLORIDE
     Indication: NASAL CONGESTION
     Route: 045

REACTIONS (1)
  - Anosmia [None]
